FAERS Safety Report 11912509 (Version 1)
Quarter: 2016Q1

REPORT INFORMATION
  Report Type: Spontaneous
  Country: JP (occurrence: JP)
  Receive Date: 20160113
  Receipt Date: 20160113
  Transmission Date: 20160526
  Serious: Yes (Hospitalization, Other)
  Sender: FDA-Public Use
  Company Number: JP-TAKEDA-2015TJP019972AA

PATIENT
  Age: 73 Year
  Sex: Male

DRUGS (1)
  1. TAKELDA COMBINATION TABLETS [Suspect]
     Active Substance: ASPIRIN\LANSOPRAZOLE
     Indication: THROMBOSIS PROPHYLAXIS
     Dosage: UNK
     Route: 048
     Dates: start: 20150215, end: 20151002

REACTIONS (2)
  - Diarrhoea [Recovered/Resolved]
  - Prerenal failure [Unknown]

NARRATIVE: CASE EVENT DATE: 201505
